FAERS Safety Report 7762359-7 (Version None)
Quarter: 2011Q3

REPORT INFORMATION
  Report Type: 
  Country: None (occurrence: None)
  Receive Date: 20110920
  Receipt Date: 20110906
  Transmission Date: 20111222
  Serious: Yes (Other)
  Sender: FDA-Public Use
  Company Number: DE-GENENTECH-324282

PATIENT

DRUGS (1)
  1. MABTHERA [Suspect]
     Indication: SYSTEMIC LUPUS ERYTHEMATOSUS
     Dosage: UNK
     Route: 042

REACTIONS (1)
  - HYPOGLOBULINAEMIA [None]
